FAERS Safety Report 7079231-0 (Version None)
Quarter: 2010Q4

REPORT INFORMATION
  Report Type: 
  Country: None (occurrence: None)
  Receive Date: 20101102
  Receipt Date: 20101027
  Transmission Date: 20110411
  Serious: Yes (Hospitalization)
  Sender: FDA-Public Use
  Company Number: TW-ROCHE-737157

PATIENT
  Age: 30 Year
  Sex: Female

DRUGS (4)
  1. AVASTIN [Suspect]
     Route: 042
     Dates: start: 20100201, end: 20100901
  2. FOLINIC ACID [Concomitant]
     Dates: start: 20100201, end: 20100901
  3. FLUOROURACIL [Concomitant]
     Dates: start: 20100201, end: 20100901
  4. IRINOTECAN HCL [Concomitant]
     Dates: start: 20100201, end: 20100901

REACTIONS (1)
  - BRAIN MASS [None]
